FAERS Safety Report 16330225 (Version 1)
Quarter: 2019Q2

REPORT INFORMATION
  Report Type: Other
  Country: IT (occurrence: IT)
  Receive Date: 20190520
  Receipt Date: 20190520
  Transmission Date: 20190711
  Serious: Yes (Other)
  Sender: FDA-Public Use
  Company Number: IT-ACCORD-128071

PATIENT
  Age: 52 Year
  Sex: Female

DRUGS (4)
  1. TIMONACIC/TIMONACIC ARGININE [Suspect]
     Active Substance: TIMONACIC
     Indication: PRODUCT USED FOR UNKNOWN INDICATION
     Route: 048
     Dates: start: 20180815, end: 20180815
  2. QUETIAPINE. [Suspect]
     Active Substance: QUETIAPINE
     Indication: PRODUCT USED FOR UNKNOWN INDICATION
     Route: 048
     Dates: start: 20180815, end: 20180815
  3. LORANS [Suspect]
     Active Substance: LORAZEPAM
     Indication: PRODUCT USED FOR UNKNOWN INDICATION
     Dosage: STRENGTH: 1 MG
     Route: 048
     Dates: start: 20180815, end: 20180815
  4. TRITTICO [Suspect]
     Active Substance: TRAZODONE HYDROCHLORIDE
     Indication: PRODUCT USED FOR UNKNOWN INDICATION
     Dosage: STRENGTH: 150 MG, TABLETS COATED WITH EXTENDED RELEASE FILM C
     Route: 048
     Dates: start: 20180815, end: 20180815

REACTIONS (4)
  - Sopor [Recovering/Resolving]
  - Confusional state [Recovering/Resolving]
  - Drug abuse [Unknown]
  - Suicide attempt [Unknown]

NARRATIVE: CASE EVENT DATE: 20180815
